FAERS Safety Report 17375599 (Version 1)
Quarter: 2020Q1

REPORT INFORMATION
  Report Type: Spontaneous
  Country: US (occurrence: US)
  Receive Date: 20200206
  Receipt Date: 20200206
  Transmission Date: 20200409
  Serious: No
  Sender: FDA-Public Use
  Company Number: US-ASTRAZENECA-2020SE18031

PATIENT
  Age: 86 Year
  Sex: Female

DRUGS (2)
  1. PRILOSEC OTC [Suspect]
     Active Substance: OMEPRAZOLE MAGNESIUM
     Indication: BARRETT^S OESOPHAGUS
     Dosage: 1 TABLET, BEDTIME AS NEEDED1.0DF AS REQUIRED
     Route: 048
  2. PRILOSEC OTC [Suspect]
     Active Substance: OMEPRAZOLE MAGNESIUM
     Indication: BARRETT^S OESOPHAGUS
     Route: 048

REACTIONS (5)
  - Off label use [Unknown]
  - Extra dose administered [Unknown]
  - Prescribed overdose [Unknown]
  - Drug effective for unapproved indication [Unknown]
  - Dysgeusia [Recovered/Resolved]
